FAERS Safety Report 9862222 (Version 1)
Quarter: 2014Q1

REPORT INFORMATION
  Report Type: Spontaneous
  Country: IT (occurrence: IT)
  Receive Date: 20140203
  Receipt Date: 20140203
  Transmission Date: 20141002
  Serious: Yes (Other)
  Sender: FDA-Public Use
  Company Number: IT-SA-2014SA012593

PATIENT
  Age: 72 Year
  Sex: Male

DRUGS (3)
  1. TRIATEC [Suspect]
     Indication: HYPERTENSION
     Route: 048
     Dates: start: 20120101
  2. LASIX [Suspect]
     Indication: HYPERTENSION
     Route: 048
     Dates: start: 20130318
  3. CONGESCOR [Suspect]
     Indication: PRODUCT USED FOR UNKNOWN INDICATION
     Route: 048
     Dates: start: 20090101

REACTIONS (1)
  - Syncope [Recovering/Resolving]
